FAERS Safety Report 24372030 (Version 1)
Quarter: 2024Q3

REPORT INFORMATION
  Report Type: Other
  Country: GB (occurrence: GB)
  Receive Date: 20240927
  Receipt Date: 20240927
  Transmission Date: 20241016
  Serious: Yes (Hospitalization, Other)
  Sender: EMD SERONO INC
  Company Number: GB-Merck Healthcare KGaA-2024050147

PATIENT
  Age: 77 Year
  Sex: Male

DRUGS (2)
  1. METFORMIN [Suspect]
     Active Substance: METFORMIN HYDROCHLORIDE
     Indication: Type 2 diabetes mellitus
  2. INSULIN NOS [Concomitant]
     Active Substance: INSULIN NOS
     Indication: Type 2 diabetes mellitus

REACTIONS (6)
  - Ketoacidosis [Recovered/Resolved]
  - Hypoglycaemia [Unknown]
  - Starvation [Unknown]
  - Cerebrovascular accident [Unknown]
  - Hyperlactacidaemia [Recovered/Resolved]
  - Contraindicated product administered [Unknown]
